FAERS Safety Report 16888917 (Version 1)
Quarter: 2019Q4

REPORT INFORMATION
  Report Type: Spontaneous
  Country: US (occurrence: US)
  Receive Date: 20191007
  Receipt Date: 20191007
  Transmission Date: 20200122
  Serious: No
  Sender: FDA-Public Use
  Company Number: US-JNJFOC-20190936357

PATIENT
  Age: 89 Year
  Sex: Female

DRUGS (1)
  1. ZYRTEC [Suspect]
     Active Substance: CETIRIZINE HYDROCHLORIDE
     Indication: MULTIPLE ALLERGIES
     Dosage: 1 1/2 TABLETS DAILY. 1 TABLET = 10 MG
     Route: 065

REACTIONS (5)
  - Sluggishness [Unknown]
  - Road traffic accident [Unknown]
  - Overdose [Unknown]
  - Wrong technique in product usage process [Unknown]
  - Fall [Unknown]
